FAERS Safety Report 9030645 (Version 1)
Quarter: 2013Q1

REPORT INFORMATION
  Report Type: Spontaneous
  Country: FR (occurrence: FR)
  Receive Date: 20130123
  Receipt Date: 20130123
  Transmission Date: 20140127
  Serious: Yes (Other)
  Sender: FDA-Public Use
  Company Number: FR-ASTRAZENECA-2013SE03183

PATIENT
  Age: 37 Year
  Sex: Female

DRUGS (6)
  1. XEROQUEL [Suspect]
     Indication: BIPOLAR I DISORDER
     Route: 048
     Dates: start: 20120119
  2. STILNOX [Suspect]
     Indication: BIPOLAR I DISORDER
     Dates: start: 20120119
  3. TERALITHE [Suspect]
     Indication: BIPOLAR I DISORDER
     Dates: start: 20120215
  4. LARGACTIL [Suspect]
     Indication: BIPOLAR I DISORDER
     Dates: start: 20120119
  5. IMOVANE [Suspect]
     Indication: BIPOLAR I DISORDER
     Dates: start: 20120119
  6. SERESTA [Suspect]
     Indication: BIPOLAR I DISORDER
     Dates: start: 20120119

REACTIONS (2)
  - Exposure during pregnancy [Unknown]
  - Gestational diabetes [Unknown]
